FAERS Safety Report 8201476-4 (Version None)
Quarter: 2012Q1

REPORT INFORMATION
  Report Type: 
  Country: None (occurrence: None)
  Receive Date: 20120312
  Receipt Date: 20120305
  Transmission Date: 20120608
  Serious: Yes (Hospitalization, Other)
  Sender: FDA-Public Use
  Company Number: US-ROXANE LABORATORIES, INC.-2012-RO-00791RO

PATIENT
  Age: 58 Year
  Sex: Male

DRUGS (3)
  1. CLONAZEPAM [Suspect]
     Dosage: 4 MG
  2. RISPERIDONE [Suspect]
     Dosage: 5 MG
  3. METHADON HCL TAB [Suspect]
     Dosage: 15 MG

REACTIONS (5)
  - BULBAR PALSY [None]
  - WEIGHT DECREASED [None]
  - HYPERPROLACTINAEMIA [None]
  - GYNAECOMASTIA [None]
  - ASPIRATION [None]
